FAERS Safety Report 7540410-7 (Version None)
Quarter: 2011Q2

REPORT INFORMATION
  Report Type: 
  Country: None (occurrence: None)
  Receive Date: 20110610
  Receipt Date: 20110601
  Transmission Date: 20111010
  Serious: Yes (Death)
  Sender: FDA-Public Use
  Company Number: US-ELI_LILLY_AND_COMPANY-US201104003908

PATIENT
  Sex: Female
  Weight: 56.689 kg

DRUGS (2)
  1. GEMZAR [Suspect]
     Dosage: UNK, DAY 1, 8
     Dates: start: 20110308, end: 20110308
  2. GEMZAR [Suspect]
     Indication: LUNG NEOPLASM MALIGNANT
     Dosage: 1000 MG/M2, DAY 1, 8
     Route: 065
     Dates: start: 20101220

REACTIONS (3)
  - NEOPLASM PROGRESSION [None]
  - DEATH [None]
  - OFF LABEL USE [None]
